FAERS Safety Report 15591211 (Version 1)
Quarter: 2018Q4

REPORT INFORMATION
  Report Type: Spontaneous
  Country: CN (occurrence: CN)
  Receive Date: 20181107
  Receipt Date: 20181107
  Transmission Date: 20190205
  Serious: Yes (Other)
  Sender: FDA-Public Use
  Company Number: CN-ASTRAZENECA-2018SF45775

PATIENT
  Age: 27234 Day
  Sex: Female
  Weight: 21 kg

DRUGS (1)
  1. TICAGRELOR. [Suspect]
     Active Substance: TICAGRELOR
     Indication: CORONARY ARTERY DISEASE
     Route: 048
     Dates: start: 20180807, end: 20180810

REACTIONS (1)
  - Respiratory depression [Recovered/Resolved]

NARRATIVE: CASE EVENT DATE: 20180810
